FAERS Safety Report 5664890-7 (Version None)
Quarter: 2008Q1

REPORT INFORMATION
  Report Type: 
  Country: None (occurrence: None)
  Receive Date: 20080314
  Receipt Date: 20080304
  Transmission Date: 20080703
  Serious: Yes (Hospitalization)
  Sender: FDA-Public Use
  Company Number: US-ELI_LILLY_AND_COMPANY-US200801004883

PATIENT
  Age: 76 Year
  Sex: Male

DRUGS (7)
  1. CYMBALTA [Suspect]
     Indication: PAIN
     Dosage: 30 MG, UNK
  2. PRILOSEC [Concomitant]
  3. TIZANIDINE HCL [Concomitant]
  4. CLARITIN [Concomitant]
     Dosage: 10 MG, DAILY (1/D)
  5. LASIX [Concomitant]
     Dosage: 40 MG, 2/D
  6. POTASSIUM CHLORIDE [Concomitant]
     Dosage: 15 ML, DAILY (1/D)
  7. ENTERIC ASPIRIN [Concomitant]
     Dosage: 81 MG, DAILY (1/D)

REACTIONS (2)
  - CARDIAC FAILURE CONGESTIVE [None]
  - PNEUMONIA [None]
